FAERS Safety Report 4874456-4 (Version None)
Quarter: 2006Q1

REPORT INFORMATION
  Report Type: 
  Country: None (occurrence: None)
  Receive Date: 20060106
  Receipt Date: 20000823
  Transmission Date: 20060701
  Serious: Yes (Other)
  Sender: FDA-Public Use
  Company Number: JP-ROCHE-243511

PATIENT
  Sex: Male
  Weight: 2.3 kg

DRUGS (12)
  1. VESANOID [Suspect]
     Indication: ACUTE PROMYELOCYTIC LEUKAEMIA
     Dates: start: 20000823, end: 20000831
  2. VESANOID [Suspect]
     Dates: start: 20000903, end: 20000909
  3. VESANOID [Suspect]
     Dates: start: 20000910, end: 20000924
  4. DAUNOMYCIN [Concomitant]
     Dates: start: 20000908, end: 20000909
  5. SUNRABIN [Concomitant]
     Dates: start: 20000908, end: 20000909
  6. FOY [Concomitant]
     Indication: DISSEMINATED INTRAVASCULAR COAGULATION
     Dates: start: 20000823, end: 20000919
  7. GASTER [Concomitant]
     Indication: PROPHYLAXIS
     Dates: start: 20000823, end: 20010121
  8. BACTRIM [Concomitant]
     Indication: PROPHYLAXIS
     Dates: start: 20000823, end: 20010121
  9. FUNGIZONE [Concomitant]
     Dates: start: 20000823, end: 20010121
  10. CEFOTAX [Concomitant]
     Indication: PROPHYLAXIS
     Dates: start: 20000823, end: 20000902
  11. EXACIN [Concomitant]
     Indication: PROPHYLAXIS
     Dates: start: 20000823, end: 20000920
  12. DIFLUCAN [Concomitant]
     Dates: start: 20000823, end: 20000920

REACTIONS (4)
  - CAESAREAN SECTION [None]
  - DRUG EXPOSURE DURING PREGNANCY [None]
  - NEONATAL RESPIRATORY DISTRESS SYNDROME [None]
  - PREMATURE BABY [None]
